FAERS Safety Report 7754754-7 (Version None)
Quarter: 2011Q3

REPORT INFORMATION
  Report Type: 
  Country: None (occurrence: None)
  Receive Date: 20110916
  Receipt Date: 20110913
  Transmission Date: 20111222
  Serious: Yes (Hospitalization)
  Sender: FDA-Public Use
  Company Number: IT-ABBOTT-11P-083-0705568-00

PATIENT
  Sex: Female

DRUGS (2)
  1. CLARITHROMYCIN [Suspect]
     Indication: BRONCHOPNEUMONIA
     Route: 048
     Dates: start: 20101230, end: 20110104
  2. AUGMENTIN '125' [Suspect]
     Indication: BRONCHOPNEUMONIA
     Route: 048
     Dates: start: 20101230, end: 20110104

REACTIONS (2)
  - PRURITUS [None]
  - ERYTHEMA [None]
